FAERS Safety Report 8107658-4 (Version None)
Quarter: 2012Q1

REPORT INFORMATION
  Report Type: 
  Country: None (occurrence: None)
  Receive Date: 20120202
  Receipt Date: 20120130
  Transmission Date: 20120608
  Serious: Yes (Other)
  Sender: FDA-Public Use
  Company Number: US-PFIZER INC-2012025277

PATIENT
  Sex: Female
  Weight: 64.853 kg

DRUGS (1)
  1. ROBITUSSIN PEAK COLD MAXIMUM STRENGTH MULTI-SYMPTOM COLD [Suspect]
     Indication: NASOPHARYNGITIS
     Dosage: UNK, 1X/DAY
     Route: 048
     Dates: start: 20111201, end: 20111201

REACTIONS (3)
  - NAUSEA [None]
  - LOWER RESPIRATORY TRACT INFECTION [None]
  - ABDOMINAL DISCOMFORT [None]
